FAERS Safety Report 21144650 (Version 2)
Quarter: 2022Q3

REPORT INFORMATION
  Report Type: Spontaneous
  Country: US (occurrence: US)
  Receive Date: 20220728
  Receipt Date: 20220801
  Transmission Date: 20221027
  Serious: Yes (Hospitalization)
  Sender: FDA-Public Use
  Company Number: US-BIOGENIDEC-2012BI015626

PATIENT
  Age: 54 Year
  Sex: Female
  Weight: 54.934 kg

DRUGS (9)
  1. TYSABRI [Suspect]
     Active Substance: NATALIZUMAB
     Indication: Multiple sclerosis
     Route: 050
     Dates: start: 20091112, end: 20121022
  2. LISINOPRIL [Concomitant]
     Active Substance: LISINOPRIL
     Indication: Renal failure
  3. SYNTHROID [Concomitant]
     Active Substance: LEVOTHYROXINE SODIUM
     Indication: Product used for unknown indication
     Route: 050
  4. PROZAC [Concomitant]
     Active Substance: FLUOXETINE HYDROCHLORIDE
     Indication: Product used for unknown indication
     Route: 050
  5. FENOFIBRATE [Concomitant]
     Active Substance: FENOFIBRATE
     Indication: Product used for unknown indication
     Route: 050
  6. MS CONTIN [Concomitant]
     Active Substance: MORPHINE SULFATE
     Indication: Product used for unknown indication
     Route: 050
  7. PERCOCET [Concomitant]
     Active Substance: ACETAMINOPHEN\OXYCODONE HYDROCHLORIDE
     Indication: Product used for unknown indication
     Route: 050
  8. VALIUM [Concomitant]
     Active Substance: DIAZEPAM
     Indication: Product used for unknown indication
     Route: 050
  9. ZANAFLEX [Concomitant]
     Active Substance: TIZANIDINE HYDROCHLORIDE
     Indication: Product used for unknown indication
     Route: 050

REACTIONS (14)
  - Acute kidney injury [Recovered/Resolved]
  - Impaired gastric emptying [Unknown]
  - Syncope [Unknown]
  - Hypokalaemia [Unknown]
  - Drug dependence [Unknown]
  - Overdose [Unknown]
  - Infection [Unknown]
  - Pneumonia [Unknown]
  - Pain [Unknown]
  - Fall [Recovered/Resolved]
  - Fibromyalgia [Unknown]
  - Hypertension [Unknown]
  - Weight decreased [Unknown]
  - Hypersensitivity [Unknown]

NARRATIVE: CASE EVENT DATE: 20120407
